FAERS Safety Report 14182783 (Version 4)
Quarter: 2018Q3

REPORT INFORMATION
  Report Type: Spontaneous
  Country: GB (occurrence: GB)
  Receive Date: 20171113
  Receipt Date: 20180719
  Transmission Date: 20181010
  Serious: Yes (Other)
  Sender: FDA-Public Use
  Company Number: GB-TEVA-824298ACC

PATIENT
  Age: 43 Year
  Sex: Male

DRUGS (9)
  1. LIPEGFILGRASTIM [Concomitant]
     Active Substance: LIPEGFILGRASTIM
     Dosage: FOUR CYCLES PLANNED OF 21 DAYS EACH; ADMINISTERED ON DAY 6 OF EACH CYCLE (SINGLE DOSE)
     Dates: start: 20170820
  2. CISPLATIN. [Suspect]
     Active Substance: CISPLATIN
     Indication: TESTICULAR GERM CELL CANCER METASTATIC
     Dosage: FOUR CYCLES PLANNED OF 21 DAYS EACH; ADMINISTERED ON DAYS 1?5 OF EACH CYCLE
     Dates: start: 20170815
  3. EMEND [Concomitant]
     Active Substance: APREPITANT
     Indication: NAUSEA
     Dosage: FOUR CYCLES PLANNED OF 21 DAYS EACH; ADMINISTERED ON DAYS 1?3 OF EACH CYCLE
     Dates: start: 20170815
  4. DEXAMETHASONE. [Concomitant]
     Active Substance: DEXAMETHASONE
     Indication: NAUSEA
     Dosage: FOUR CYCLES PLANNED OF 21 DAYS EACH; ADMINISTERED ON DAYS 1?5 OF EACH CYCLE
     Dates: start: 20170815
  5. CISPLATIN. [Suspect]
     Active Substance: CISPLATIN
     Dosage: GIVEN ON DAYS 1 ? 5 OF CHEMOTHERAPY CYCLE
     Dates: start: 20170815
  6. ETOPOSIDE. [Suspect]
     Active Substance: ETOPOSIDE
     Dosage: GIVEN ON DAYS 1 ? 5 OF CHEMOTHERAPY CYCLE
     Dates: start: 20170815
  7. ETOPOSIDE. [Suspect]
     Active Substance: ETOPOSIDE
     Indication: TESTICULAR GERM CELL CANCER METASTATIC
     Dosage: FOUR CYCLES PLANNED OF 21 DAYS EACH; ADMINISTERED ON DAYS 1?5 OF EACH CYCLE
     Dates: start: 20170815
  8. ZAPONEX [Suspect]
     Active Substance: CLOZAPINE
     Indication: SCHIZOPHRENIA
     Route: 048
     Dates: start: 20151103
  9. ONDANSETRON [Concomitant]
     Active Substance: ONDANSETRON
     Indication: NAUSEA
     Dates: start: 20170815

REACTIONS (12)
  - Contraindicated product administered [Not Recovered/Not Resolved]
  - Platelet count decreased [Recovered/Resolved]
  - Leukopenia [Recovered/Resolved]
  - Platelet count increased [Recovered/Resolved]
  - Thrombocytopenia [Not Recovered/Not Resolved]
  - Seminoma [Not Recovered/Not Resolved]
  - Platelet count increased [Recovered/Resolved]
  - Neutropenia [Not Recovered/Not Resolved]
  - Platelet count increased [Not Recovered/Not Resolved]
  - Testicular germ cell cancer metastatic [Not Recovered/Not Resolved]
  - Leukopenia [Not Recovered/Not Resolved]
  - Neutrophil count decreased [Recovered/Resolved]

NARRATIVE: CASE EVENT DATE: 20170620
